FAERS Safety Report 6206119-7 (Version None)
Quarter: 2009Q2

REPORT INFORMATION
  Report Type: 
  Country: None (occurrence: None)
  Receive Date: 20090528
  Receipt Date: 20081222
  Transmission Date: 20091009
  Serious: No
  Sender: FDA-Public Use
  Company Number: US-KINGPHARMUSA00001-K200801446

PATIENT
  Age: 26 Year
  Sex: Female

DRUGS (2)
  1. AVINZA [Suspect]
     Dosage: 30 MG, QD
     Dates: start: 20081201, end: 20081201
  2. AVINZA [Suspect]
     Dosage: 60 MG, QD
     Dates: start: 20081201

REACTIONS (1)
  - EYE PAIN [None]
